FAERS Safety Report 8042356-7 (Version None)
Quarter: 2012Q1

REPORT INFORMATION
  Report Type: 
  Country: None (occurrence: None)
  Receive Date: 20120112
  Receipt Date: 20120111
  Transmission Date: 20120608
  Serious: Yes (Other)
  Sender: FDA-Public Use
  Company Number: US-ROCHE-793688

PATIENT
  Sex: Female
  Weight: 81.72 kg

DRUGS (1)
  1. ACCUTANE [Suspect]
     Indication: ACNE
     Dates: start: 20000901, end: 20010531

REACTIONS (6)
  - INFLAMMATORY BOWEL DISEASE [None]
  - SUICIDAL IDEATION [None]
  - PANIC ATTACK [None]
  - IRRITABLE BOWEL SYNDROME [None]
  - COLONIC POLYP [None]
  - DEPRESSION [None]
